FAERS Safety Report 7756521-7 (Version None)
Quarter: 2011Q3

REPORT INFORMATION
  Report Type: 
  Country: None (occurrence: None)
  Receive Date: 20110916
  Receipt Date: 20110906
  Transmission Date: 20111222
  Serious: Yes (Hospitalization, Other)
  Sender: FDA-Public Use
  Company Number: US-ELI_LILLY_AND_COMPANY-US201106004794

PATIENT
  Sex: Female

DRUGS (21)
  1. SANCTURA [Concomitant]
     Dosage: 60 MG, QD
  2. FORTEO [Suspect]
     Dosage: 20 UG, QD
  3. COSOPT [Concomitant]
  4. TOPROL-XL [Concomitant]
     Dosage: 100 MG, QD
  5. COLACE [Concomitant]
     Dosage: 100 MG, QD
  6. VITAMIN D [Concomitant]
     Dosage: 400 IU, QD
  7. FENTANYL [Concomitant]
     Dosage: 50 UG, EVERY HOUR
  8. NORCO [Concomitant]
     Indication: PAIN
  9. ZOFRAN [Concomitant]
     Indication: NAUSEA
  10. SENOKOT [Concomitant]
  11. ULTRAM [Concomitant]
     Dosage: 50 MG, EVERY 6 HRS
  12. OS-CAL [Concomitant]
     Dosage: 500 MG, OTHER
  13. PRILOSEC [Concomitant]
     Dosage: 20 MG, QD
  14. MIRALAX [Concomitant]
     Dosage: 17 G, 4/W
  15. FORTEO [Suspect]
     Indication: OSTEOPOROSIS
     Dosage: 20 UG, QD
     Dates: start: 20101217
  16. KEFLEX [Concomitant]
     Dosage: 500 MG, OTHER
  17. ALPHAGAN P [Concomitant]
     Dosage: UNK
  18. TRAVATAN [Concomitant]
     Dosage: UNK
  19. CARAFATE [Concomitant]
     Dosage: 1 G, OTHER
  20. RITALIN [Concomitant]
     Dosage: 5 MG, OTHER
  21. ASPIRIN [Concomitant]
     Dosage: 81 MG, QD

REACTIONS (8)
  - CARDIAC FAILURE CONGESTIVE [None]
  - ASTHENIA [None]
  - URINARY TRACT INFECTION [None]
  - FALL [None]
  - RENAL FAILURE [None]
  - ESCHERICHIA INFECTION [None]
  - BLOOD SODIUM DECREASED [None]
  - CONFUSIONAL STATE [None]
